FAERS Safety Report 4885299-X (Version None)
Quarter: 2005Q4

REPORT INFORMATION
  Report Type: 
  Country: None (occurrence: None)
  Receive Date: 20051220
  Receipt Date: 20051028
  Transmission Date: 20060501
  Serious: Yes (Other)
  Sender: FDA-Public Use
  Company Number: 423132

PATIENT
  Sex: Female

DRUGS (1)
  1. BONIVA [Suspect]
     Dosage: 1 PER MONTH, ORAL
     Route: 048
     Dates: start: 20050715

REACTIONS (3)
  - ERUCTATION [None]
  - PAIN [None]
  - PHARYNGOLARYNGEAL PAIN [None]
